FAERS Safety Report 4313294-8 (Version None)
Quarter: 2004Q1

REPORT INFORMATION
  Report Type: 
  Country: None (occurrence: None)
  Receive Date: 20040304
  Receipt Date: 20040224
  Transmission Date: 20041129
  Serious: Yes (Hospitalization)
  Sender: FDA-Public Use
  Company Number: 2004UW03617

PATIENT
  Age: 52 Year
  Sex: Female

DRUGS (4)
  1. ATACAND [Suspect]
     Indication: HYPERTENSION
     Dosage: 8 MG QD PO
     Route: 048
  2. ESTRAGEL [Concomitant]
  3. ELOCOM [Concomitant]
  4. FLURINOL [Concomitant]

REACTIONS (1)
  - THROMBOPHLEBITIS [None]
